FAERS Safety Report 7329547-5 (Version None)
Quarter: 2011Q1

REPORT INFORMATION
  Report Type: 
  Country: None (occurrence: None)
  Receive Date: 20110303
  Receipt Date: 20110217
  Transmission Date: 20110831
  Serious: Yes (Hospitalization)
  Sender: FDA-Public Use
  Company Number: ES-BAYER-2011-015249

PATIENT
  Age: 71 Year
  Sex: Male

DRUGS (6)
  1. ASPIRIN [Suspect]
     Indication: MYOCARDIAL ISCHAEMIA
     Route: 048
     Dates: start: 20100101, end: 20101201
  2. LORAZEPAM [Concomitant]
     Indication: ANXIETY
     Dosage: 1 MG, HS
     Route: 048
     Dates: start: 20100101
  3. COLCHICINA [Concomitant]
     Indication: HYPERURICAEMIA
     Dosage: 1 MG, HS
     Route: 048
     Dates: start: 20101220
  4. ATORVASTATIN CALCIUM [Concomitant]
     Indication: DYSLIPIDAEMIA
     Dosage: 20 MG, HS
     Route: 048
     Dates: start: 20100101
  5. IBUPROFEN [Interacting]
     Indication: HYPERURICAEMIA
     Route: 048
     Dates: start: 20101220, end: 20101201
  6. OMEPRAZOLE [Concomitant]
     Indication: PROPHYLAXIS
     Dosage: 20 MG, HS
     Route: 048
     Dates: start: 20100101

REACTIONS (1)
  - GASTRIC ULCER HAEMORRHAGE [None]
